FAERS Safety Report 25383900 (Version 1)
Quarter: 2025Q2

REPORT INFORMATION
  Report Type: Report from Study
  Country: US (occurrence: US)
  Receive Date: 20250602
  Receipt Date: 20250602
  Transmission Date: 20250717
  Serious: Yes (Other)
  Sender: ALEXION PHARMACEUTICALS
  Company Number: US-AstraZeneca-CH-00880881A

PATIENT

DRUGS (1)
  1. CAPIVASERTIB [Suspect]
     Active Substance: CAPIVASERTIB
     Indication: Breast cancer female
     Dosage: 160 MILLIGRAM, Q12H

REACTIONS (6)
  - Incorrect dose administered [Unknown]
  - Hypernatraemia [Unknown]
  - Diabetes mellitus inadequate control [Unknown]
  - Oedema [Unknown]
  - Weight increased [Unknown]
  - Diarrhoea [Unknown]
